FAERS Safety Report 20112408 (Version 1)
Quarter: 2021Q4

REPORT INFORMATION
  Report Type: Spontaneous
  Country: US (occurrence: US)
  Receive Date: 20211125
  Receipt Date: 20211125
  Transmission Date: 20220303
  Serious: Yes (Other)
  Sender: FDA-Public Use
  Company Number: US-NOVARTISPH-NVSC2021US266567

PATIENT
  Age: 38 Year
  Sex: Female

DRUGS (6)
  1. RANITIDINE [Suspect]
     Active Substance: RANITIDINE
     Indication: Dyspepsia
     Dosage: 300 MG, QD
     Route: 065
     Dates: start: 201001, end: 202001
  2. RANITIDINE [Suspect]
     Active Substance: RANITIDINE
     Indication: Impaired gastric emptying
  3. RANITIDINE [Suspect]
     Active Substance: RANITIDINE
     Indication: Hernia
  4. RANITIDINE [Suspect]
     Active Substance: RANITIDINE
     Indication: Dyspepsia
     Dosage: 300 MG, QD
     Route: 065
     Dates: start: 201001, end: 202001
  5. RANITIDINE [Suspect]
     Active Substance: RANITIDINE
     Indication: Impaired gastric emptying
  6. RANITIDINE [Suspect]
     Active Substance: RANITIDINE
     Indication: Hernia

REACTIONS (2)
  - Gastric cancer stage II [Unknown]
  - Product use in unapproved indication [Unknown]

NARRATIVE: CASE EVENT DATE: 20170101
